FAERS Safety Report 6697041-0 (Version None)
Quarter: 2010Q2

REPORT INFORMATION
  Report Type: 
  Country: None (occurrence: None)
  Receive Date: 20100426
  Receipt Date: 20100414
  Transmission Date: 20101027
  Serious: Yes (Other)
  Sender: FDA-Public Use
  Company Number: US-JNJFOC-20100404283

PATIENT
  Sex: Male
  Weight: 104.33 kg

DRUGS (16)
  1. DITROPAN XL [Suspect]
     Indication: HYPERTONIC BLADDER
     Route: 048
  2. ATENOLOL [Concomitant]
     Indication: RENAL DISORDER
     Route: 048
  3. DIOVAN [Concomitant]
     Indication: CARDIAC DISORDER
     Route: 048
  4. AMLODIPINE [Concomitant]
     Indication: CARDIAC DISORDER
     Route: 048
  5. PLAVIX [Concomitant]
     Indication: CARDIAC DISORDER
     Route: 048
  6. ASPIRIN [Concomitant]
     Indication: CARDIAC DISORDER
     Route: 048
  7. LIPITOR [Concomitant]
     Indication: BLOOD CHOLESTEROL
     Route: 048
  8. RENAX [Concomitant]
     Indication: RENAL DISORDER
     Route: 048
  9. ZANTAC [Concomitant]
     Indication: GASTRIC DISORDER
     Route: 048
  10. ALLOPURINOL [Concomitant]
     Indication: RENAL DISORDER
     Route: 048
  11. LANTUS [Concomitant]
     Indication: DIABETES MELLITUS
     Route: 058
  12. NOVOLOG [Concomitant]
     Indication: DIABETES MELLITUS
  13. VITAMIN C [Concomitant]
     Indication: GENERAL PHYSICAL CONDITION
     Route: 048
  14. FISH OIL [Concomitant]
     Indication: GENERAL PHYSICAL CONDITION
     Route: 048
  15. FLAXSEED OIL [Concomitant]
     Indication: GENERAL PHYSICAL CONDITION
     Route: 048
  16. GLUCOSAMINE + CHONDROITIN SULFATE [Concomitant]
     Indication: DRUG USE FOR UNKNOWN INDICATION
     Route: 048

REACTIONS (4)
  - ABDOMINAL PAIN [None]
  - BACK PAIN [None]
  - GALLBLADDER DISORDER [None]
  - PROSTATOMEGALY [None]
